FAERS Safety Report 12146238 (Version 1)
Quarter: 2016Q1

REPORT INFORMATION
  Report Type: Spontaneous
  Country: US (occurrence: US)
  Receive Date: 20160304
  Receipt Date: 20160304
  Transmission Date: 20160526
  Serious: No
  Sender: FDA-Public Use
  Company Number: US-MYLANLABS-2015M1041635

PATIENT
  Sex: Male

DRUGS (1)
  1. LIDOCAINE PATCH [Suspect]
     Active Substance: LIDOCAINE
     Dosage: 1 DF, QD 12H ON 12H OFF
     Route: 003

REACTIONS (3)
  - Product adhesion issue [Recovered/Resolved]
  - Application site irritation [Recovered/Resolved]
  - Product quality issue [Recovered/Resolved]
